FAERS Safety Report 8375103-X (Version None)
Quarter: 2012Q2

REPORT INFORMATION
  Report Type: 
  Country: None (occurrence: None)
  Receive Date: 20120521
  Receipt Date: 20120508
  Transmission Date: 20120825
  Serious: Yes (Hospitalization, Other)
  Sender: FDA-Public Use
  Company Number: US-BAXTER-2012BAX004342

PATIENT
  Sex: Male

DRUGS (2)
  1. DIANEAL LOW CALCIUM W/ DEXTROSE 1.5% [Suspect]
     Indication: PERITONEAL DIALYSIS
     Route: 033
  2. HUMIRA [Suspect]
     Indication: PSORIASIS
     Route: 058

REACTIONS (4)
  - GASTROINTESTINAL HAEMORRHAGE [None]
  - FATIGUE [None]
  - HAEMOGLOBIN DECREASED [None]
  - LOCALISED INFECTION [None]
